FAERS Safety Report 5400022-8 (Version None)
Quarter: 2007Q3

REPORT INFORMATION
  Report Type: 
  Country: None (occurrence: None)
  Receive Date: 20070730
  Receipt Date: 20070719
  Transmission Date: 20080115
  Serious: Yes (Hospitalization)
  Sender: FDA-Public Use
  Company Number: JP-AMGEN-US234513

PATIENT
  Sex: Female

DRUGS (7)
  1. ENBREL [Suspect]
     Indication: RHEUMATOID ARTHRITIS
     Dosage: UNKNOWN
     Route: 058
     Dates: start: 20060124, end: 20060307
  2. ENBREL [Suspect]
     Route: 058
     Dates: start: 20060307
  3. MEDROL [Concomitant]
     Dosage: UNKNOWN
     Route: 048
  4. TOWARAT [Concomitant]
     Dosage: UNKNOWN
     Route: 048
  5. ISCOTIN [Concomitant]
     Dosage: UNKNOWN
     Route: 048
  6. CYCLOSPORINE [Concomitant]
     Indication: RHEUMATOID ARTHRITIS
     Dosage: UNKNOWN
     Route: 048
     Dates: start: 20051004
  7. MICARDIS [Concomitant]
     Dosage: UNKNOWN
     Route: 048

REACTIONS (1)
  - PNEUMOCYSTIS JIROVECI PNEUMONIA [None]
